FAERS Safety Report 7122866-7 (Version None)
Quarter: 2010Q4

REPORT INFORMATION
  Report Type: 
  Country: None (occurrence: None)
  Receive Date: 20101124
  Receipt Date: 20101117
  Transmission Date: 20110411
  Serious: Yes (Death, Other)
  Sender: FDA-Public Use
  Company Number: GB-ABBOTT-10P-167-0672089-00

PATIENT
  Sex: Male
  Weight: 72 kg

DRUGS (6)
  1. RITONAVIR SOFT GELATIN CAPSULES [Suspect]
     Indication: HIV INFECTION
     Dosage: 100 MG, DAILY
     Dates: start: 20090201
  2. SUSTIVA [Suspect]
     Indication: HIV INFECTION
     Dates: start: 20020901, end: 20051001
  3. SUSTIVA [Suspect]
     Dates: start: 20090201
  4. ATAZANAVIR [Suspect]
     Indication: HIV INFECTION
     Dosage: 100 MG FROM FEB 2009
     Route: 048
     Dates: start: 20090201
  5. ATRIPLA [Suspect]
     Indication: HIV INFECTION
     Route: 048
     Dates: start: 20090201
  6. NEVIRAPINE [Concomitant]
     Indication: PRODUCT USED FOR UNKNOWN INDICATION

REACTIONS (3)
  - BLOOD BILIRUBIN INCREASED [None]
  - COMPLETED SUICIDE [None]
  - NIGHTMARE [None]
